FAERS Safety Report 25060806 (Version 2)
Quarter: 2025Q1

REPORT INFORMATION
  Report Type: Spontaneous
  Country: US (occurrence: US)
  Receive Date: 20250310
  Receipt Date: 20250313
  Transmission Date: 20250409
  Serious: Yes (Life-Threatening, Other)
  Sender: PFIZER
  Company Number: US-KOANAAP-SML-US-2024-01188

PATIENT
  Age: 66 Year
  Sex: Male

DRUGS (7)
  1. GEMCITABINE HYDROCHLORIDE [Suspect]
     Active Substance: GEMCITABINE HYDROCHLORIDE
     Indication: Cholangiocarcinoma
  2. CISPLATIN [Suspect]
     Active Substance: CISPLATIN
     Indication: Cholangiocarcinoma
  3. DURVALUMAB [Suspect]
     Active Substance: DURVALUMAB
     Indication: Cholangiocarcinoma
  4. LISINOPRIL [Concomitant]
     Active Substance: LISINOPRIL
  5. DAPAGLIFLOZIN [Concomitant]
     Active Substance: DAPAGLIFLOZIN
  6. RITUXIMAB [Concomitant]
     Active Substance: RITUXIMAB
     Indication: Anti-glomerular basement membrane disease
  7. RITUXIMAB [Concomitant]
     Active Substance: RITUXIMAB
     Indication: Glomerulonephritis membranous

REACTIONS (6)
  - Acute kidney injury [Unknown]
  - Ascites [Unknown]
  - Deep vein thrombosis [Unknown]
  - Tumour lysis syndrome [Unknown]
  - Generalised oedema [Unknown]
  - Off label use [Unknown]
